FAERS Safety Report 5118063-7 (Version None)
Quarter: 2006Q3

REPORT INFORMATION
  Report Type: 
  Country: None (occurrence: None)
  Receive Date: 20060929
  Receipt Date: 20060920
  Transmission Date: 20061208
  Serious: Yes (Hospitalization)
  Sender: FDA-Public Use
  Company Number: CG-MERCK-0609USA04320

PATIENT
  Age: 29 Year
  Sex: Female

DRUGS (1)
  1. STROMECTOL [Suspect]
     Route: 048
     Dates: start: 20060210, end: 20060210

REACTIONS (6)
  - DISORIENTATION [None]
  - HEADACHE [None]
  - LOGORRHOEA [None]
  - OCULAR HYPERAEMIA [None]
  - PYREXIA [None]
  - VERTIGO [None]
